FAERS Safety Report 8992963 (Version 3)
Quarter: 2013Q1

REPORT INFORMATION
  Report Type: Spontaneous
  Country: US (occurrence: US)
  Receive Date: 20130102
  Receipt Date: 20130114
  Transmission Date: 20140127
  Serious: Yes (Hospitalization)
  Sender: FDA-Public Use
  Company Number: US-JNJFOC-20121212873

PATIENT
  Sex: Male

DRUGS (4)
  1. ZYRTEC [Suspect]
     Route: 065
  2. ZYRTEC [Suspect]
     Indication: MULTIPLE ALLERGIES
     Route: 065
  3. HYPERTENSION MEDICATION [Concomitant]
     Indication: HYPERTENSION
     Route: 065
  4. DIABETES MEDICATION [Concomitant]
     Indication: DIABETES MELLITUS
     Route: 065

REACTIONS (1)
  - Neutropenia [Unknown]
